FAERS Safety Report 5863118-2 (Version None)
Quarter: 2008Q3

REPORT INFORMATION
  Report Type: 
  Country: None (occurrence: None)
  Receive Date: 20080828
  Receipt Date: 20080819
  Transmission Date: 20090109
  Serious: Yes (Hospitalization)
  Sender: FDA-Public Use
  Company Number: FR-GILEAD-2008-0017894

PATIENT
  Sex: Male

DRUGS (4)
  1. VIREAD [Suspect]
     Indication: HIV INFECTION
     Route: 048
     Dates: start: 20011101, end: 20060401
  2. ZIAGEN [Concomitant]
     Indication: HIV INFECTION
     Route: 048
     Dates: start: 20011101, end: 20060916
  3. KALETRA [Concomitant]
     Indication: HIV INFECTION
     Route: 048
     Dates: start: 20011101, end: 20050401
  4. EPIVIR [Concomitant]
     Indication: HIV INFECTION
     Dates: start: 20031201, end: 20060401

REACTIONS (3)
  - ARTERITIS [None]
  - COELIAC ARTERY STENOSIS [None]
  - MESENTERIC ARTERY STENOSIS [None]
